FAERS Safety Report 20967317 (Version 1)
Quarter: 2022Q2

REPORT INFORMATION
  Report Type: Spontaneous
  Country: US (occurrence: US)
  Receive Date: 20220616
  Receipt Date: 20220616
  Transmission Date: 20220721
  Serious: Yes (Other)
  Sender: FDA-Public Use
  Company Number: US-GLAND PHARMA LIMITED-2022US003361

PATIENT
  Sex: Female

DRUGS (5)
  1. MAGNESIUM SULFATE [Suspect]
     Active Substance: MAGNESIUM SULFATE
     Indication: Product used for unknown indication
     Dosage: UNK
     Route: 065
  2. AZITHROMYCIN [Suspect]
     Active Substance: AZITHROMYCIN
     Indication: Product used for unknown indication
     Dosage: UNK
     Route: 065
  3. BETAMETHASONE [Suspect]
     Active Substance: BETAMETHASONE
     Indication: Product used for unknown indication
     Dosage: UNK
     Route: 065
  4. CLINDAMYCIN [Suspect]
     Active Substance: CLINDAMYCIN
     Indication: Product used for unknown indication
     Dosage: UNK
     Route: 065
  5. GENTAMICIN [Suspect]
     Active Substance: GENTAMICIN
     Indication: Product used for unknown indication
     Dosage: UNK
     Route: 065

REACTIONS (6)
  - Premature baby [Unknown]
  - Sepsis neonatal [Unknown]
  - Neonatal respiratory distress syndrome [Unknown]
  - Newborn persistent pulmonary hypertension [Unknown]
  - Skin disorder [Unknown]
  - Foetal exposure during pregnancy [Unknown]
